FAERS Safety Report 16230137 (Version 1)
Quarter: 2019Q2

REPORT INFORMATION
  Report Type: Report from Study
  Country: ES (occurrence: ES)
  Receive Date: 20190423
  Receipt Date: 20190423
  Transmission Date: 20190711
  Serious: Yes (Other)
  Sender: FDA-Public Use
  Company Number: ES-NAPPMUNDI-GBR-2019-0066009

PATIENT
  Age: 71 Year
  Sex: Male

DRUGS (16)
  1. FENTANYL. [Suspect]
     Active Substance: FENTANYL
     Indication: CANCER PAIN
     Dosage: 75 MCG, Q72H (75 UG/H/72H)
     Route: 062
  2. GABAPENTIN. [Concomitant]
     Active Substance: GABAPENTIN
     Indication: NEURALGIA
     Dosage: 300 MG, (300 MG IN PROGRESSIVE INCREASE UP TO /8 HOURS)
     Route: 048
     Dates: start: 2018
  3. FENTANYL. [Suspect]
     Active Substance: FENTANYL
     Dosage: 50 MCG, Q72H (50 UG/H/72H)
     Route: 062
  4. MST CONTINUS [Suspect]
     Active Substance: MORPHINE SULFATE
     Dosage: PROGRESSIVE INCREASE UP TO 160 MG/12 HOURS
     Route: 048
     Dates: start: 2018
  5. PECFENT [Suspect]
     Active Substance: FENTANYL CITRATE
     Indication: BREAKTHROUGH PAIN
     Dosage: 100 MCG, (AS RESCUE)
     Route: 045
  6. FENTANYL. [Suspect]
     Active Substance: FENTANYL
     Indication: BREAKTHROUGH PAIN
     Dosage: 800 MCG, DAILY (2 DAILY DOSES OF 400 MCG)
     Route: 048
  7. MST CONTINUS [Suspect]
     Active Substance: MORPHINE SULFATE
     Indication: BREAKTHROUGH PAIN
     Dosage: 120 MG, Q12H (120 MG/12H)
     Route: 048
  8. MST CONTINUS [Suspect]
     Active Substance: MORPHINE SULFATE
     Dosage: 130 MG, Q12H (130 MG/12H)
     Route: 048
  9. MORPHINE SULFATE. [Suspect]
     Active Substance: MORPHINE SULFATE
     Dosage: 40 MG, DAILY (40 MG/24H)
     Route: 042
  10. MORPHINE SULFATE. [Suspect]
     Active Substance: MORPHINE SULFATE
     Indication: PRODUCT USED FOR UNKNOWN INDICATION
     Dosage: 90 MG, DAILY (90 MG/24H)
     Route: 042
  11. PEMETREXED. [Concomitant]
     Active Substance: PEMETREXED
     Indication: LUNG ADENOCARCINOMA STAGE IV
     Dosage: UNK
     Route: 065
     Dates: start: 2018
  12. CARBOPLATIN. [Concomitant]
     Active Substance: CARBOPLATIN
     Indication: LUNG ADENOCARCINOMA STAGE IV
     Dosage: UNK
     Route: 065
     Dates: start: 2018
  13. FENTANYL. [Suspect]
     Active Substance: FENTANYL
     Indication: BREAKTHROUGH PAIN
     Dosage: 400 MCG, Q4H (400 MCG/4 HOURS, AS NEEDED)
     Route: 002
  14. METAMIZOLE [Concomitant]
     Active Substance: METAMIZOLE
     Indication: CANCER PAIN
     Dosage: 575 MG, Q8H
     Route: 048
     Dates: start: 2018
  15. DULOXETINE. [Concomitant]
     Active Substance: DULOXETINE
     Indication: NEURALGIA
     Dosage: 60 MG, DAILY (60 MG/24H)
     Route: 048
     Dates: start: 2018
  16. IBUPROFEN. [Concomitant]
     Active Substance: IBUPROFEN
     Indication: CANCER PAIN
     Dosage: 600 MG, Q8H
     Route: 048
     Dates: start: 2018

REACTIONS (2)
  - Drug tolerance decreased [Unknown]
  - Toxicity to various agents [Unknown]

NARRATIVE: CASE EVENT DATE: 201812
